FAERS Safety Report 25050649 (Version 2)
Quarter: 2025Q1

REPORT INFORMATION
  Report Type: Report from Study
  Country: BR (occurrence: BR)
  Receive Date: 20250307
  Receipt Date: 20250313
  Transmission Date: 20250409
  Serious: Yes (Death)
  Sender: AKCEA THERAPEUTICS
  Company Number: BR-AKCEA THERAPEUTICS, INC.-2025IS000534

PATIENT

DRUGS (1)
  1. TEGSEDI [Suspect]
     Active Substance: INOTERSEN SODIUM
     Indication: Hereditary neuropathic amyloidosis
     Dosage: 284 MILLIGRAM, QW
     Route: 058
     Dates: start: 20241210, end: 20250211

REACTIONS (5)
  - Acute pulmonary oedema [Fatal]
  - Cardiac failure congestive [Fatal]
  - Disease progression [Fatal]
  - Acute respiratory failure [Fatal]
  - Cardio-respiratory arrest [Fatal]
